FAERS Safety Report 5377942-6 (Version None)
Quarter: 2007Q2

REPORT INFORMATION
  Report Type: 
  Country: None (occurrence: None)
  Receive Date: 20070629
  Receipt Date: 20070622
  Transmission Date: 20071010
  Serious: Yes (Other)
  Sender: FDA-Public Use
  Company Number: 2007SP012563

PATIENT
  Sex: Male

DRUGS (1)
  1. PROVENTIL-HFA [Suspect]
     Indication: MULTIPLE ALLERGIES
     Dosage: ; PO
     Route: 048

REACTIONS (10)
  - ANGER [None]
  - FEELING ABNORMAL [None]
  - NERVOUS SYSTEM DISORDER [None]
  - OFF LABEL USE [None]
  - OVERDOSE [None]
  - PSYCHOTIC DISORDER [None]
  - SELF-MEDICATION [None]
  - SOMNOLENCE [None]
  - THERAPEUTIC RESPONSE DECREASED [None]
  - THROAT IRRITATION [None]
